FAERS Safety Report 7364665-7 (Version None)
Quarter: 2011Q1

REPORT INFORMATION
  Report Type: 
  Country: None (occurrence: None)
  Receive Date: 20110321
  Receipt Date: 20110316
  Transmission Date: 20110831
  Serious: Yes (Other)
  Sender: FDA-Public Use
  Company Number: IN-PFIZER INC-2011058793

PATIENT
  Age: 44 Year
  Sex: Female
  Weight: 60 kg

DRUGS (1)
  1. DOLONEX [Suspect]
     Indication: PAIN
     Dosage: 2 ML, 1X/DAY
     Route: 030

REACTIONS (1)
  - URINARY RETENTION [None]
